FAERS Safety Report 21870325 (Version 1)
Quarter: 2023Q1

REPORT INFORMATION
  Report Type: Spontaneous
  Country: FR (occurrence: FR)
  Receive Date: 20230117
  Receipt Date: 20230117
  Transmission Date: 20230417
  Serious: Yes (Hospitalization)
  Sender: FDA-Public Use
  Company Number: FR-JNJFOC-20230118681

PATIENT
  Age: 87 Year
  Sex: Male

DRUGS (3)
  1. ABIRATERONE ACETATE [Interacting]
     Active Substance: ABIRATERONE ACETATE
     Indication: Prostate cancer
     Route: 048
     Dates: start: 2022
  2. DEGARELIX [Suspect]
     Active Substance: DEGARELIX
     Indication: Prostate cancer
     Route: 065
     Dates: start: 2022
  3. ACYCLOVIR [Concomitant]
     Active Substance: ACYCLOVIR
     Indication: Product used for unknown indication
     Route: 065

REACTIONS (5)
  - Gastrointestinal inflammation [Unknown]
  - Anaemia [Recovering/Resolving]
  - Hepatic enzyme increased [Recovered/Resolved]
  - Thrombocytopenia [Recovering/Resolving]
  - Drug interaction [Unknown]
